FAERS Safety Report 10569326 (Version 1)
Quarter: 2014Q4

REPORT INFORMATION
  Report Type: Spontaneous
  Country: US (occurrence: US)
  Receive Date: 20141106
  Receipt Date: 20141106
  Transmission Date: 20150529
  Serious: No
  Sender: FDA-Public Use
  Company Number: US-TEVA-516817USA

PATIENT
  Age: 59 Year
  Sex: Female

DRUGS (9)
  1. TOLTERODINE [Concomitant]
     Active Substance: TOLTERODINE
     Route: 065
  2. DIAZEPAM. [Concomitant]
     Active Substance: DIAZEPAM
     Route: 065
     Dates: start: 2002
  3. DETROL LA [Concomitant]
     Active Substance: TOLTERODINE TARTRATE
     Route: 065
     Dates: start: 2005
  4. AVONEX [Concomitant]
     Active Substance: INTERFERON BETA-1A
     Route: 065
     Dates: start: 2002
  5. ADDERALL [Concomitant]
     Active Substance: AMPHETAMINE ASPARTATE\AMPHETAMINE SULFATE\DEXTROAMPHETAMINE SACCHARATE\DEXTROAMPHETAMINE SULFATE
     Route: 065
  6. AMPYRA [Suspect]
     Active Substance: DALFAMPRIDINE
     Indication: GAIT DISTURBANCE
     Dosage: 20 MILLIGRAM DAILY;
     Dates: start: 20140527, end: 20140715
  7. HYDROCODONE [Concomitant]
     Active Substance: HYDROCODONE
     Route: 065
     Dates: start: 2011
  8. COPAXONE [Suspect]
     Active Substance: GLATIRAMER ACETATE
     Indication: MULTIPLE SCLEROSIS
  9. AMPYRA [Suspect]
     Active Substance: DALFAMPRIDINE
     Dosage: 20 MILLIGRAM DAILY;
     Dates: start: 20140813

REACTIONS (8)
  - Drug ineffective [Unknown]
  - Activities of daily living impaired [Not Recovered/Not Resolved]
  - Therapy cessation [Unknown]
  - Malaise [Unknown]
  - Fall [Unknown]
  - Gait disturbance [Recovered/Resolved]
  - Drug dose omission [Unknown]
  - Injection site bruising [Recovering/Resolving]

NARRATIVE: CASE EVENT DATE: 2014
